FAERS Safety Report 17258561 (Version 1)
Quarter: 2020Q1

REPORT INFORMATION
  Report Type: Spontaneous
  Country: CA (occurrence: CA)
  Receive Date: 20200110
  Receipt Date: 20200110
  Transmission Date: 20200409
  Serious: Yes (Death, Other)
  Sender: FDA-Public Use
  Company Number: CA-TEVA-2020-CA-1166972

PATIENT
  Age: 58 Year
  Sex: Male

DRUGS (1)
  1. MORPHINE [Suspect]
     Active Substance: MORPHINE
     Indication: PAIN
     Route: 065

REACTIONS (7)
  - Drug ineffective [Fatal]
  - Insomnia [Fatal]
  - Completed suicide [Fatal]
  - Drug dependence [Fatal]
  - Anxiety [Fatal]
  - Pain [Fatal]
  - Psychomotor hyperactivity [Fatal]
